FAERS Safety Report 7239572-0 (Version None)
Quarter: 2011Q1

REPORT INFORMATION
  Report Type: 
  Country: None (occurrence: None)
  Receive Date: 20110121
  Receipt Date: 20110114
  Transmission Date: 20110831
  Serious: No
  Sender: FDA-Public Use
  Company Number: US-B.I. PHARMACEUTICALS,INC./RIDGEFIELD-2011-BP-01278BP

PATIENT
  Sex: Female

DRUGS (6)
  1. CALCIUM [Concomitant]
     Indication: PROPHYLAXIS
  2. PRADAXA [Suspect]
     Indication: ATRIAL FIBRILLATION
     Dosage: 300 MG
     Route: 048
     Dates: start: 20101222
  3. DIGOXIN [Concomitant]
     Indication: CARDIAC DISORDER
  4. PEPCID [Concomitant]
     Indication: ULCER
  5. CRESTOR [Concomitant]
     Indication: BLOOD CHOLESTEROL INCREASED
  6. METOPROLOL [Concomitant]
     Indication: CARDIAC DISORDER

REACTIONS (1)
  - URINARY INCONTINENCE [None]
